FAERS Safety Report 11226274 (Version 1)
Quarter: 2015Q2

REPORT INFORMATION
  Report Type: Spontaneous
  Country: NL (occurrence: NL)
  Receive Date: 20150629
  Receipt Date: 20150629
  Transmission Date: 20150821
  Serious: Yes (Other)
  Sender: FDA-Public Use
  Company Number: NL-BAYER-2015-361968

PATIENT
  Age: 25 Year
  Sex: Female

DRUGS (2)
  1. HEPARIN [Concomitant]
     Active Substance: HEPARIN SODIUM
     Dosage: FULL DOSE
  2. ACETYLSALICYLIC ACID({=100 MG) [Suspect]
     Active Substance: ASPIRIN
     Indication: ANTIPHOSPHOLIPID SYNDROME

REACTIONS (9)
  - Off label use [None]
  - Syncope [None]
  - Drug ineffective for unapproved indication [None]
  - Premature delivery [None]
  - Exposure during pregnancy [None]
  - Condition aggravated [None]
  - Acute myocardial infarction [None]
  - Pre-eclampsia [None]
  - HELLP syndrome [None]
